FAERS Safety Report 9669333 (Version 2)
Quarter: 2013Q4

REPORT INFORMATION
  Report Type: Spontaneous
  Country: US (occurrence: US)
  Receive Date: 20131105
  Receipt Date: 20131105
  Transmission Date: 20140711
  Serious: No
  Sender: FDA-Public Use
  Company Number: US-JNJFOC-20130713482

PATIENT
  Sex: Female
  Weight: 71.22 kg

DRUGS (17)
  1. UNSPECIFIED GENERIC FENTANYL [Suspect]
     Indication: FIBROMYALGIA
     Route: 062
     Dates: end: 2010
  2. DURAGESIC [Suspect]
     Indication: PAIN
     Dosage: (100 UG/HR + 25 UG/HR)
     Route: 062
     Dates: start: 2010
  3. DURAGESIC [Suspect]
     Indication: FIBROMYALGIA
     Route: 062
  4. DURAGESIC [Suspect]
     Indication: FIBROMYALGIA
     Route: 062
  5. DURAGESIC [Suspect]
     Indication: FIBROMYALGIA
     Dosage: 100 UG/HR + 25 UG/HR
     Route: 062
  6. IBUPROFEN [Suspect]
     Route: 065
  7. IBUPROFEN [Suspect]
     Indication: PRODUCT USED FOR UNKNOWN INDICATION
     Route: 065
  8. DILAUDID [Concomitant]
     Indication: PAIN
     Dosage: AS NEEDED
     Route: 048
  9. NORVASC [Concomitant]
     Route: 065
  10. REGLAN [Concomitant]
     Indication: GASTRIC DISORDER
     Route: 065
  11. MOBIC [Concomitant]
     Indication: ARTHROPATHY
     Route: 065
  12. DICYCLOMINE [Concomitant]
     Indication: GASTRIC DISORDER
     Route: 065
  13. VIVELLE-DOT [Concomitant]
     Indication: OESTROGEN REPLACEMENT THERAPY
     Route: 062
  14. XANAX [Concomitant]
     Route: 065
  15. PROTONIX [Concomitant]
     Indication: GASTRIC DISORDER
     Route: 065
  16. VENTOLIN [Concomitant]
     Route: 065
  17. FLOVENT [Concomitant]
     Route: 065

REACTIONS (9)
  - Product adhesion issue [Unknown]
  - Mental impairment [Recovered/Resolved]
  - Drug ineffective [Not Recovered/Not Resolved]
  - Hypokinesia [Not Recovered/Not Resolved]
  - Vomiting [Recovered/Resolved]
  - Abdominal discomfort [Recovered/Resolved]
  - Drug administered at inappropriate site [Recovered/Resolved]
  - Paresis [Recovering/Resolving]
  - Application site reaction [Not Recovered/Not Resolved]
